FAERS Safety Report 20686499 (Version 7)
Quarter: 2022Q3

REPORT INFORMATION
  Report Type: Report from Study
  Country: JP (occurrence: JP)
  Receive Date: 20220407
  Receipt Date: 20220818
  Transmission Date: 20221026
  Serious: Yes (Hospitalization)
  Sender: FDA-Public Use
  Company Number: JP-ONO-2022JP008282

PATIENT
  Age: 62 Year
  Sex: Male
  Weight: 103.7 kg

DRUGS (65)
  1. PACLITAXEL [Suspect]
     Active Substance: PACLITAXEL
     Indication: Pancreatic carcinoma
     Dosage: 260 MG; 3 WEEKS ON/ 1 WEEK OFF;  MOST RECENT DOSE 10-MAR-2022
     Route: 042
     Dates: start: 20210813
  2. BMS-986310 [Suspect]
     Active Substance: BMS-986310
     Indication: Pancreatic carcinoma
     Dosage: 40 MG, EVERYDAY
     Route: 048
     Dates: start: 20210813
  3. BMS-986310 [Suspect]
     Active Substance: BMS-986310
     Dosage: 20 MG, EVERYDAY; RECENT DOSE ON 09-FEB-2022
     Route: 048
     Dates: start: 20220203
  4. BMS-986310 [Suspect]
     Active Substance: BMS-986310
  5. GEMCITABINE [Suspect]
     Active Substance: GEMCITABINE
     Indication: Pancreatic carcinoma
     Dosage: 3 WEEKS ON / 1 WEEK OFF; MOST RECENT DOSE 10-MAR-2022
     Route: 042
     Dates: start: 20210813
  6. FLUOROMETHOLONE [Concomitant]
     Active Substance: FLUOROMETHOLONE
     Indication: Cataract
     Dosage: 1 DF= 1 UNITS NO; UNK, EVERYDAY, ONCE OR TWICE
     Route: 047
  7. FLUOROMETHOLONE [Concomitant]
     Active Substance: FLUOROMETHOLONE
  8. FLUOROMETHOLONE [Concomitant]
     Active Substance: FLUOROMETHOLONE
  9. FLUOROMETHOLONE [Concomitant]
     Active Substance: FLUOROMETHOLONE
  10. FLUOROMETHOLONE [Concomitant]
     Active Substance: FLUOROMETHOLONE
  11. PIRENOXINE [Concomitant]
     Active Substance: PIRENOXINE
     Indication: Cataract
     Dosage: 1 DF = 1 UNIT NOS; UNK, EVERYDAY, ONCE OR TWICE
     Route: 047
  12. PIRENOXINE [Concomitant]
     Active Substance: PIRENOXINE
  13. PIRENOXINE [Concomitant]
     Active Substance: PIRENOXINE
  14. PIRENOXINE [Concomitant]
     Active Substance: PIRENOXINE
  15. PIRENOXINE [Concomitant]
     Active Substance: PIRENOXINE
  16. METOCLOPRAMIDE [Concomitant]
     Active Substance: METOCLOPRAMIDE
     Indication: Nausea
     Dosage: 1 DF, PRN
     Route: 048
     Dates: start: 20210824
  17. METOCLOPRAMIDE [Concomitant]
     Active Substance: METOCLOPRAMIDE
  18. METOCLOPRAMIDE [Concomitant]
     Active Substance: METOCLOPRAMIDE
  19. METOCLOPRAMIDE [Concomitant]
     Active Substance: METOCLOPRAMIDE
  20. CALONAL [Concomitant]
     Active Substance: ACETAMINOPHEN
     Indication: Abdominal pain
     Dosage: 2 DF, PRN
     Route: 048
     Dates: start: 20210830
  21. CALONAL [Concomitant]
     Active Substance: ACETAMINOPHEN
  22. CALONAL [Concomitant]
     Active Substance: ACETAMINOPHEN
  23. CALONAL [Concomitant]
     Active Substance: ACETAMINOPHEN
  24. CALONAL [Concomitant]
     Active Substance: ACETAMINOPHEN
  25. DIETARY SUPPLEMENT\PROBIOTICS [Concomitant]
     Active Substance: DIETARY SUPPLEMENT\PROBIOTICS
     Indication: Prophylaxis against diarrhoea
     Dosage: 1 DF, PRN
     Route: 048
     Dates: start: 20210819
  26. DIETARY SUPPLEMENT\PROBIOTICS [Concomitant]
     Active Substance: DIETARY SUPPLEMENT\PROBIOTICS
  27. DIETARY SUPPLEMENT\PROBIOTICS [Concomitant]
     Active Substance: DIETARY SUPPLEMENT\PROBIOTICS
  28. DIETARY SUPPLEMENT\PROBIOTICS [Concomitant]
     Active Substance: DIETARY SUPPLEMENT\PROBIOTICS
  29. DIETARY SUPPLEMENT\PROBIOTICS [Concomitant]
     Active Substance: DIETARY SUPPLEMENT\PROBIOTICS
  30. MAGNESIUM OXIDE [Concomitant]
     Active Substance: MAGNESIUM OXIDE
     Indication: Constipation
     Dosage: 330 MG, Q8H
     Route: 048
     Dates: start: 20210830
  31. MAGNESIUM OXIDE [Concomitant]
     Active Substance: MAGNESIUM OXIDE
  32. MAGNESIUM OXIDE [Concomitant]
     Active Substance: MAGNESIUM OXIDE
  33. MAGNESIUM OXIDE [Concomitant]
     Active Substance: MAGNESIUM OXIDE
  34. MAGNESIUM OXIDE [Concomitant]
     Active Substance: MAGNESIUM OXIDE
  35. TORSEMIDE [Concomitant]
     Active Substance: TORSEMIDE
     Indication: Oedema peripheral
     Dosage: 8 MG, EVERYDAY
     Route: 048
     Dates: start: 20220128
  36. TORSEMIDE [Concomitant]
     Active Substance: TORSEMIDE
  37. TORSEMIDE [Concomitant]
     Active Substance: TORSEMIDE
  38. TORSEMIDE [Concomitant]
     Active Substance: TORSEMIDE
  39. TORSEMIDE [Concomitant]
     Active Substance: TORSEMIDE
  40. SPIRONOLACTONE [Concomitant]
     Active Substance: SPIRONOLACTONE
     Indication: Oedema peripheral
     Dosage: 100 MG, EVERYDAY
     Route: 048
     Dates: start: 20220128
  41. SPIRONOLACTONE [Concomitant]
     Active Substance: SPIRONOLACTONE
  42. SPIRONOLACTONE [Concomitant]
     Active Substance: SPIRONOLACTONE
  43. SPIRONOLACTONE [Concomitant]
     Active Substance: SPIRONOLACTONE
  44. VONOPRAZAN FUMARATE [Concomitant]
     Active Substance: VONOPRAZAN FUMARATE
     Indication: Gastric ulcer
     Dosage: 20 MG, EVERYDAY
     Route: 048
     Dates: start: 20211216
  45. VONOPRAZAN FUMARATE [Concomitant]
     Active Substance: VONOPRAZAN FUMARATE
  46. VONOPRAZAN FUMARATE [Concomitant]
     Active Substance: VONOPRAZAN FUMARATE
  47. VONOPRAZAN FUMARATE [Concomitant]
     Active Substance: VONOPRAZAN FUMARATE
  48. VONOPRAZAN FUMARATE [Concomitant]
     Active Substance: VONOPRAZAN FUMARATE
  49. HEPARINOID [Concomitant]
     Indication: Dry skin prophylaxis
     Dosage: APPROPRIATE AMOUNT, PRN
     Route: 061
     Dates: start: 20211216
  50. HEPARINOID [Concomitant]
  51. HEPARINOID [Concomitant]
  52. HEPARINOID [Concomitant]
  53. HEPARINOID [Concomitant]
  54. FEBUXOSTAT [Concomitant]
     Active Substance: FEBUXOSTAT
     Indication: Hyperuricaemia
     Dosage: 10 MG, EVERYDAY
     Route: 048
     Dates: start: 20220310
  55. FEBUXOSTAT [Concomitant]
     Active Substance: FEBUXOSTAT
     Dosage: 40 MG, EVERYDAY
     Route: 048
     Dates: start: 20220325
  56. FEBUXOSTAT [Concomitant]
     Active Substance: FEBUXOSTAT
  57. FEBUXOSTAT [Concomitant]
     Active Substance: FEBUXOSTAT
  58. FEBUXOSTAT [Concomitant]
     Active Substance: FEBUXOSTAT
  59. CALCIUM POLYSTYRENE SULFONATE [Concomitant]
     Active Substance: CALCIUM POLYSTYRENE SULFONATE
     Indication: Hyperkalaemia
     Dosage: 5 G, Q8H
     Route: 048
     Dates: start: 20220325
  60. CALCIUM POLYSTYRENE SULFONATE [Concomitant]
     Active Substance: CALCIUM POLYSTYRENE SULFONATE
  61. CALCIUM POLYSTYRENE SULFONATE [Concomitant]
     Active Substance: CALCIUM POLYSTYRENE SULFONATE
  62. CALCIUM POLYSTYRENE SULFONATE [Concomitant]
     Active Substance: CALCIUM POLYSTYRENE SULFONATE
  63. NAPROXEN [Concomitant]
     Active Substance: NAPROXEN
     Indication: Abdominal pain
     Dosage: 100 MG, Q8H; THERAPY END DATE: --2022
     Route: 048
     Dates: start: 20211104
  64. POLAPREZINC [Concomitant]
     Active Substance: POLAPREZINC
     Indication: Gastric ulcer
     Dosage: 75 MG, Q12H?OD
     Route: 048
     Dates: start: 20211223
  65. RESTAMIN [DIPHENHYDRAMINE HYDROCHLORIDE] [Concomitant]
     Indication: Pruritus
     Dosage: APPROPRIATE AMOUNT, PRN
     Route: 061
     Dates: start: 20220303

REACTIONS (3)
  - Pleural effusion [Recovering/Resolving]
  - Renal disorder [Recovered/Resolved with Sequelae]
  - COVID-19 [Recovering/Resolving]

NARRATIVE: CASE EVENT DATE: 20220324
